FAERS Safety Report 23775621 (Version 1)
Quarter: 2024Q2

REPORT INFORMATION
  Report Type: Spontaneous
  Country: CN (occurrence: CN)
  Receive Date: 20240423
  Receipt Date: 20240423
  Transmission Date: 20240715
  Serious: Yes (Death, Other)
  Sender: FDA-Public Use
  Company Number: CN-STRIDES ARCOLAB LIMITED-2024SP004634

PATIENT
  Age: 11 Year
  Sex: Male

DRUGS (6)
  1. ETOPOSIDE [Suspect]
     Active Substance: ETOPOSIDE
     Indication: Neoplasm malignant
     Dosage: UNK, CYCLICAL (RECEIVED 1 CYCLE)
     Route: 065
  2. CARBOPLATIN [Suspect]
     Active Substance: CARBOPLATIN
     Indication: Neoplasm malignant
     Dosage: UNK, CYCLICAL (RECEIVED 1 CYCLE)
     Route: 065
  3. APATINIB [Suspect]
     Active Substance: APATINIB
     Indication: Neoplasm malignant
     Dosage: UNK, CYCLICAL (RECEIVED 6 CYCLES)
     Route: 065
  4. APATINIB [Suspect]
     Active Substance: APATINIB
     Dosage: UNK, CYCLICAL (RECEIVED 1 CYCLE AGAIN AFTER CATEQUENTINIB THERAPY)
     Route: 065
  5. CATEQUENTINIB [Suspect]
     Active Substance: CATEQUENTINIB
     Indication: Neoplasm malignant
     Dosage: UNK, CYCLICAL (RECEIVED 4 CYCLES)
     Route: 065
  6. LAROTRECTINIB [Suspect]
     Active Substance: LAROTRECTINIB
     Indication: Neoplasm malignant
     Dosage: UNK, CYCLICAL (RECEIVED 21 CYCLES)
     Route: 065

REACTIONS (3)
  - Death [Fatal]
  - Malignant neoplasm progression [Unknown]
  - Drug ineffective for unapproved indication [Unknown]
